FAERS Safety Report 9099162 (Version 1)
Quarter: 2013Q1

REPORT INFORMATION
  Report Type: Spontaneous
  Country: US (occurrence: US)
  Receive Date: 20130213
  Receipt Date: 20130213
  Transmission Date: 20140127
  Serious: Yes (Other)
  Sender: FDA-Public Use
  Company Number: US-TEVA-385963USA

PATIENT
  Age: 74 Year
  Sex: Male

DRUGS (1)
  1. TREANDA [Suspect]
     Dates: start: 20121214

REACTIONS (1)
  - Thrombocytopenia [Recovering/Resolving]
